FAERS Safety Report 18525639 (Version 2)
Quarter: 2020Q4

REPORT INFORMATION
  Report Type: Spontaneous
  Country: US (occurrence: US)
  Receive Date: 20201119
  Receipt Date: 20201207
  Transmission Date: 20210114
  Serious: No
  Sender: FDA-Public Use
  Company Number: US-SA-2020SA325151

PATIENT

DRUGS (1)
  1. DUPIXENT [Suspect]
     Active Substance: DUPILUMAB
     Indication: DERMATITIS ATOPIC
     Dosage: 300 MG, QOW
     Route: 058
     Dates: start: 20200924

REACTIONS (5)
  - Periorbital swelling [Unknown]
  - Dark circles under eyes [Unknown]
  - Alopecia [Unknown]
  - Periorbital haemorrhage [Unknown]
  - Ocular discomfort [Unknown]

NARRATIVE: CASE EVENT DATE: 2020
